FAERS Safety Report 6875070-1 (Version None)
Quarter: 2010Q3

REPORT INFORMATION
  Report Type: 
  Country: None (occurrence: None)
  Receive Date: 20100727
  Receipt Date: 20100721
  Transmission Date: 20110219
  Serious: Yes (Death, Other)
  Sender: FDA-Public Use
  Company Number: US-AMGEN-QUU423091

PATIENT
  Sex: Male
  Weight: 90 kg

DRUGS (5)
  1. NPLATE [Suspect]
     Indication: IDIOPATHIC THROMBOCYTOPENIC PURPURA
     Dates: start: 20100324
  2. CORTICOSTEROIDS [Concomitant]
     Dates: start: 20081114
  3. PROPRANOLOL [Concomitant]
  4. ZESTORETIC [Concomitant]
  5. UNSPECIFIED STEROIDS [Concomitant]
     Route: 061

REACTIONS (9)
  - CARDIO-RESPIRATORY ARREST [None]
  - EMBOLISM ARTERIAL [None]
  - PNEUMONIA [None]
  - RESPIRATORY FAILURE [None]
  - SEPSIS [None]
  - STAPHYLOCOCCAL INFECTION [None]
  - THROMBOCYTOSIS [None]
  - THROMBOSIS [None]
  - TRACHEOBRONCHITIS [None]
